FAERS Safety Report 12013022 (Version 1)
Quarter: 2016Q1

REPORT INFORMATION
  Report Type: Spontaneous
  Country: CA (occurrence: CA)
  Receive Date: 20160205
  Receipt Date: 20160205
  Transmission Date: 20160526
  Serious: Yes (Hospitalization)
  Sender: FDA-Public Use
  Company Number: CA-TEVA-632415ACC

PATIENT
  Age: 15 Year
  Sex: Male
  Weight: 77 kg

DRUGS (1)
  1. MINOCYCLINE [Suspect]
     Active Substance: MINOCYCLINE\MINOCYCLINE HYDROCHLORIDE
     Indication: ACNE
     Dosage: 200 MILLIGRAM DAILY;
     Route: 048

REACTIONS (3)
  - Pyrexia [Recovered/Resolved]
  - Polyarthritis [Recovered/Resolved]
  - Rash [Recovered/Resolved]
